FAERS Safety Report 9013044 (Version 3)
Quarter: 2013Q1

REPORT INFORMATION
  Report Type: Report from Study
  Country: PT (occurrence: PT)
  Receive Date: 20130114
  Receipt Date: 20130129
  Transmission Date: 20140127
  Serious: Yes (Death, Hospitalization)
  Sender: FDA-Public Use
  Company Number: PT-TEVA-372435USA

PATIENT
  Age: 79 Year
  Sex: Female
  Weight: 60 kg

DRUGS (7)
  1. TREANDA [Suspect]
     Indication: CHRONIC LYMPHOCYTIC LEUKAEMIA
     Route: 042
     Dates: start: 20110629
  2. RITUXIMAB [Suspect]
     Indication: CHRONIC LYMPHOCYTIC LEUKAEMIA
     Route: 042
     Dates: start: 20110629
  3. RITUXIMAB [Suspect]
     Route: 042
     Dates: start: 20130102
  4. CYCLOPHOSPHAMIDE [Suspect]
     Dates: start: 20060529, end: 20061204
  5. ALEMTUZUMAB [Concomitant]
  6. PREDNISOLON [Concomitant]
     Dates: start: 20121019, end: 20121101
  7. OMEPRASOL [Concomitant]
     Dates: start: 20121030

REACTIONS (1)
  - Acute myeloid leukaemia [Fatal]
